FAERS Safety Report 10237208 (Version 1)
Quarter: 2014Q1

REPORT INFORMATION
  Report Type: Spontaneous
  Country: US (occurrence: None)
  Receive Date: 20140306
  Receipt Date: 20140306
  Transmission Date: 20141002
  Serious: Yes (Other)
  Sender: FDA-Public Use
  Company Number: 163-21880-13103662

PATIENT
  Age: 70 Year
  Sex: Female

DRUGS (7)
  1. REVLIMID [Suspect]
     Indication: PLASMA CELL MYELOMA
     Dosage: 15 MG, 21 IN 21 D, PO
     Route: 048
     Dates: start: 20130830
  2. VITAMIN D (ERGOCALCIFEROL)(UKNOWN) [Concomitant]
  3. PREDNISONE(PREDNISONE)(UKNOWN) [Concomitant]
  4. CALCIUM(CALCIUM)(UKNOWN) [Concomitant]
  5. ACYCLOVIR(ACICLOVIR(UKNOWN) [Concomitant]
  6. BACTRIM DS (BACTRIM)(UKNOWN) [Concomitant]
  7. XARELTO (RIVAROXABAN)(UKNOWN) [Concomitant]

REACTIONS (2)
  - Thrombosis [None]
  - Urticaria [None]
